FAERS Safety Report 24137156 (Version 2)
Quarter: 2024Q3

REPORT INFORMATION
  Report Type: Report from Study
  Country: IN (occurrence: IN)
  Receive Date: 20240725
  Receipt Date: 20240731
  Transmission Date: 20241017
  Serious: Yes (Death, Hospitalization)
  Sender: ROCHE
  Company Number: IN-ROCHE-3551199

PATIENT
  Age: 65 Year
  Sex: Male

DRUGS (1)
  1. TECENTRIQ [Suspect]
     Active Substance: ATEZOLIZUMAB
     Indication: Hepatocellular carcinoma
     Dosage: ON 11/MAY/2024, HE RECEIVED LAST DOSE OF ATEZOLIZUMAB.
     Route: 058
     Dates: start: 20230904

REACTIONS (3)
  - Asthenia [Unknown]
  - Off label use [Unknown]
  - Death [Fatal]
